FAERS Safety Report 5984024-9 (Version None)
Quarter: 2008Q4

REPORT INFORMATION
  Report Type: 
  Country: None (occurrence: None)
  Receive Date: 20081205
  Receipt Date: 20081205
  Transmission Date: 20090506
  Serious: No
  Sender: FDA-Public Use
  Company Number: None

PATIENT
  Age: 45 Year
  Sex: Female
  Weight: 55.7924 kg

DRUGS (1)
  1. ZYPREXA [Suspect]
     Dosage: 2.5 DAILY  LAST FEW MONTHS

REACTIONS (6)
  - BURNING SENSATION [None]
  - LOSS OF CONSCIOUSNESS [None]
  - MEMORY IMPAIRMENT [None]
  - PANIC ATTACK [None]
  - RESTLESSNESS [None]
  - SLEEP DISORDER [None]
